FAERS Safety Report 5342571-7 (Version None)
Quarter: 2007Q2

REPORT INFORMATION
  Report Type: 
  Country: None (occurrence: None)
  Receive Date: 20070601
  Receipt Date: 20061121
  Transmission Date: 20071010
  Serious: No
  Sender: FDA-Public Use
  Company Number: A0628294A

PATIENT
  Sex: Female

DRUGS (3)
  1. AUGMENTIN ES-600 [Suspect]
     Indication: OVARIAN INFECTION
     Dosage: 2TSP TWICE PER DAY
     Route: 048
     Dates: start: 20061110
  2. CHINESE MEDICATION [Concomitant]
  3. CHINESE MEDICINE [Concomitant]

REACTIONS (4)
  - DIZZINESS [None]
  - FEELING ABNORMAL [None]
  - HEADACHE [None]
  - NAUSEA [None]
